FAERS Safety Report 23317353 (Version 3)
Quarter: 2024Q4

REPORT INFORMATION
  Report Type: Spontaneous
  Country: US (occurrence: US)
  Receive Date: 20231219
  Receipt Date: 20241017
  Transmission Date: 20250115
  Serious: No
  Sender: ROCHE
  Company Number: US-ROCHE-3440327

PATIENT
  Age: 32 Year
  Sex: Male

DRUGS (4)
  1. HEMLIBRA [Suspect]
     Active Substance: EMICIZUMAB-KXWH
     Indication: Factor VIII deficiency
     Dosage: STRENGTH 150 MG/ML
     Route: 058
     Dates: start: 202211
  2. TYLENOL [Concomitant]
     Active Substance: ACETAMINOPHEN
  3. SUBOXONE [Concomitant]
     Active Substance: BUPRENORPHINE HYDROCHLORIDE\NALOXONE HYDROCHLORIDE
  4. CHLORHEXIDINE [Concomitant]
     Active Substance: CHLORHEXIDINE

REACTIONS (3)
  - Haemorrhage [Unknown]
  - Pain [Unknown]
  - Joint injury [Unknown]

NARRATIVE: CASE EVENT DATE: 20231007
